FAERS Safety Report 7512417-7 (Version None)
Quarter: 2011Q2

REPORT INFORMATION
  Report Type: 
  Country: None (occurrence: None)
  Receive Date: 20110531
  Receipt Date: 20110519
  Transmission Date: 20111010
  Serious: Yes (Disabling, Other)
  Sender: FDA-Public Use
  Company Number: JP-ROCHE-769409

PATIENT
  Sex: Male
  Weight: 48 kg

DRUGS (6)
  1. AVASTIN [Suspect]
     Indication: RECTAL CANCER
     Route: 042
     Dates: start: 20110308, end: 20110308
  2. OXALIPLATIN [Concomitant]
     Route: 041
     Dates: start: 20110308, end: 20110308
  3. DEXART [Concomitant]
     Route: 041
     Dates: start: 20110308, end: 20110308
  4. ZOFRAN [Concomitant]
     Route: 041
     Dates: start: 20110308, end: 20110308
  5. FLUOROURACIL [Concomitant]
     Route: 041
     Dates: start: 20110308, end: 20110310
  6. LEUCOVORIN CALCIUM [Concomitant]
     Route: 041
     Dates: start: 20110308, end: 20110308

REACTIONS (4)
  - PERITONITIS [None]
  - RENAL ARTERY THROMBOSIS [None]
  - RENAL IMPAIRMENT [None]
  - NEPHRITIS [None]
